FAERS Safety Report 19180780 (Version 1)
Quarter: 2021Q2

REPORT INFORMATION
  Report Type: Spontaneous
  Country: IT (occurrence: IT)
  Receive Date: 20210426
  Receipt Date: 20210426
  Transmission Date: 20210717
  Serious: Yes (Death)
  Sender: FDA-Public Use
  Company Number: IT-KYOWAKIRIN-2021BKK006403

PATIENT

DRUGS (1)
  1. POTELIGEO [Suspect]
     Active Substance: MOGAMULIZUMAB-KPKC
     Indication: CUTANEOUS T-CELL LYMPHOMA
     Dosage: THREE ADMINISTRATIONS (WITHIN FIVE WEEKS APPROXIMATELY)
     Route: 065

REACTIONS (1)
  - Disease progression [Fatal]
